FAERS Safety Report 13772051 (Version 1)
Quarter: 2017Q3

REPORT INFORMATION
  Report Type: Spontaneous
  Country: US (occurrence: US)
  Receive Date: 20170720
  Receipt Date: 20170720
  Transmission Date: 20171127
  Serious: Yes (Hospitalization, Other)
  Sender: FDA-Public Use
  Company Number: US-GLAXOSMITHKLINE-US2017100150

PATIENT
  Age: 86 Year
  Sex: Female

DRUGS (3)
  1. BIOTENE TOOTHPASTE VARIANT NOT SPECIFIED (SAVANNAH) TOOTHPASTE [Suspect]
     Active Substance: SODIUM FLUORIDE
     Indication: DENTAL CLEANING
     Dosage: UNK
  2. BIOTENE MOUTH SPRAY (SAVANNAH) OROMUCOSAL SPRAY [Suspect]
     Active Substance: GLYCERIN
     Indication: DRY MOUTH
     Dosage: UNK
  3. BIOTENE ORAL BALANCE GEL (AROMA) GEL [Suspect]
     Active Substance: DEVICE\XYLITOL
     Indication: DRY MOUTH
     Dosage: UNK, USED 2 TO 4 TIMES

REACTIONS (5)
  - Hospitalisation [Unknown]
  - Eye disorder [Not Recovered/Not Resolved]
  - Product quality issue [Unknown]
  - Feeling abnormal [Unknown]
  - Cataract [Not Recovered/Not Resolved]
